FAERS Safety Report 18050133 (Version 1)
Quarter: 2020Q3

REPORT INFORMATION
  Report Type: Other
  Country: AT (occurrence: AT)
  Receive Date: 20200721
  Receipt Date: 20200721
  Transmission Date: 20201103
  Serious: No
  Sender: FDA-Public Use
  Company Number: AT-ROCHE-2643670

PATIENT
  Age: 44 Year
  Sex: Female

DRUGS (16)
  1. OCRELIZUMAB. [Suspect]
     Active Substance: OCRELIZUMAB
     Indication: PROGRESSIVE RELAPSING MULTIPLE SCLEROSIS
     Dosage: 300 MG/250 ML
     Route: 042
     Dates: start: 20190513
  2. DIBONDRIN [Concomitant]
     Active Substance: DIPHENHYDRAMINE HYDROCHLORIDE
     Indication: PREMEDICATION
     Dosage: NEXT DOSE OF DIBONDRIN WAS ADMINISTERED ON 13/MAY/2019 AND 18/NOV/2019
     Route: 042
     Dates: start: 20190429, end: 20190429
  3. MYOCHOLINE [Concomitant]
     Active Substance: BETHANECHOL CHLORIDE
     Route: 048
  4. SOLUDACORTIN [Concomitant]
     Route: 042
     Dates: start: 20191118, end: 20191118
  5. NOMEXOR [Concomitant]
     Active Substance: NEBIVOLOL HYDROCHLORIDE
     Route: 048
  6. SIMVASTATIN. [Concomitant]
     Active Substance: SIMVASTATIN
     Route: 048
  7. OCRELIZUMAB. [Suspect]
     Active Substance: OCRELIZUMAB
     Dosage: 600 MG/500 ML
     Route: 042
     Dates: start: 20191118
  8. SOLUDACORTIN [Concomitant]
     Route: 042
     Dates: start: 20200622, end: 20200622
  9. ACIMED [Concomitant]
     Dosage: 1 CAPSULE
     Route: 048
  10. DIBONDRIN [Concomitant]
     Active Substance: DIPHENHYDRAMINE HYDROCHLORIDE
     Route: 042
     Dates: start: 20200622, end: 20200622
  11. OCRELIZUMAB. [Suspect]
     Active Substance: OCRELIZUMAB
     Indication: PRIMARY PROGRESSIVE MULTIPLE SCLEROSIS
     Dosage: 300 MG/250 ML
     Route: 042
     Dates: start: 20190429
  12. AGLANDIN [Concomitant]
     Active Substance: TAMSULOSIN HYDROCHLORIDE
     Route: 048
  13. SOLUDACORTIN [Concomitant]
     Indication: PREMEDICATION
     Route: 042
     Dates: start: 20190429, end: 20190429
  14. SOLUDACORTIN [Concomitant]
     Route: 042
     Dates: start: 20190513, end: 20190513
  15. OCRELIZUMAB. [Suspect]
     Active Substance: OCRELIZUMAB
     Dosage: 600 MG/500 ML
     Route: 042
     Dates: start: 20200622
  16. PARACETAMOL [Concomitant]
     Active Substance: ACETAMINOPHEN
     Indication: PREMEDICATION
     Dosage: NEXT DOSE OF PARACETAMOL WAS ADMINISTERED ON 13/MAY/2019, 22/JUN/2020 AND 18/NOV/2019
     Route: 048
     Dates: start: 20190429, end: 20190429

REACTIONS (1)
  - Genital herpes [Recovering/Resolving]

NARRATIVE: CASE EVENT DATE: 20200624
